FAERS Safety Report 20167798 (Version 2)
Quarter: 2021Q4

REPORT INFORMATION
  Report Type: Spontaneous
  Country: US (occurrence: US)
  Receive Date: 20211210
  Receipt Date: 20211218
  Transmission Date: 20220303
  Serious: Yes (Hospitalization, Other)
  Sender: FDA-Public Use
  Company Number: US-MLMSERVICE-20211125-3237368-1

PATIENT
  Age: 39 Year
  Sex: Female

DRUGS (2)
  1. PROGESTERONE [Suspect]
     Active Substance: PROGESTERONE
     Indication: Prophylaxis
     Dosage: UNK
     Route: 030
  2. DIPHENHYDRAMINE [Suspect]
     Active Substance: DIPHENHYDRAMINE
     Indication: Pruritus
     Dosage: UNK
     Route: 048

REACTIONS (9)
  - Cholestasis of pregnancy [Recovering/Resolving]
  - Maternal exposure during pregnancy [Recovering/Resolving]
  - Cholestasis [Recovering/Resolving]
  - Pruritus [Recovered/Resolved]
  - Faeces discoloured [Unknown]
  - Chromaturia [Unknown]
  - Jaundice [Unknown]
  - Nausea [Unknown]
  - Drug ineffective [Unknown]
